FAERS Safety Report 16678032 (Version 9)
Quarter: 2020Q2

REPORT INFORMATION
  Report Type: Report from Study
  Country: US (occurrence: US)
  Receive Date: 20190807
  Receipt Date: 20200629
  Transmission Date: 20200713
  Serious: Yes (Hospitalization, Other)
  Sender: FDA-Public Use
  Company Number: US-ACTELION-A-NJ2019-193870

PATIENT
  Age: 77 Year
  Sex: Male
  Weight: 87.53 kg

DRUGS (2)
  1. ADCIRCA [Concomitant]
     Active Substance: TADALAFIL
  2. OPSUMIT [Suspect]
     Active Substance: MACITENTAN
     Indication: PULMONARY ARTERIAL HYPERTENSION
     Dosage: 10 MG, QD
     Route: 048
     Dates: start: 2013

REACTIONS (13)
  - Chest pain [Unknown]
  - Laser therapy [Unknown]
  - Hospitalisation [Unknown]
  - Transfusion [Unknown]
  - Fluid retention [Unknown]
  - Retinal tear [Unknown]
  - Small intestinal haemorrhage [Unknown]
  - Cataract operation [Unknown]
  - Rectal haemorrhage [Unknown]
  - Diabetes mellitus [Unknown]
  - Haemoglobin decreased [Unknown]
  - Gout [Unknown]
  - Oedema [Unknown]

NARRATIVE: CASE EVENT DATE: 2017
